FAERS Safety Report 25022815 (Version 1)
Quarter: 2025Q1

REPORT INFORMATION
  Report Type: Spontaneous
  Country: CN (occurrence: CN)
  Receive Date: 20250228
  Receipt Date: 20250228
  Transmission Date: 20250409
  Serious: Yes (Hospitalization)
  Sender: ROCHE
  Company Number: CN-CHEPLA-2025002411

PATIENT
  Age: 72 Year
  Sex: Female
  Weight: 38 kg

DRUGS (6)
  1. BEVACIZUMAB [Suspect]
     Active Substance: BEVACIZUMAB
     Indication: Rectal cancer
     Dosage: APPROVAL NO. GYZZ S20190040
     Route: 042
     Dates: start: 20250124, end: 20250124
  2. CAPECITABINE [Suspect]
     Active Substance: CAPECITABINE
     Indication: Rectal cancer
     Dosage: APPROVAL NO. GYZZ H20073024; MORNING
     Route: 048
     Dates: start: 20250124, end: 20250201
  3. CAPECITABINE [Suspect]
     Active Substance: CAPECITABINE
     Dosage: APPROVAL NO. GYZZ H20073024; AFTERNOON
     Route: 048
     Dates: start: 20250124, end: 20250201
  4. OXALIPLATIN [Suspect]
     Active Substance: OXALIPLATIN
     Indication: Rectal cancer
     Dosage: APPROVAL NO. GYZZ H20213312
     Route: 042
     Dates: start: 20250124, end: 20250124
  5. SODIUM CHLORIDE [Concomitant]
     Active Substance: SODIUM CHLORIDE
     Indication: Product used for unknown indication
     Dosage: APPROVAL NO. GYZZ H34023607
     Route: 042
     Dates: start: 20250124, end: 20250124
  6. SODIUM CHLORIDE [Concomitant]
     Active Substance: SODIUM CHLORIDE
     Dosage: APPROVAL NO. GYZZ H34023608
     Route: 042
     Dates: start: 20250124, end: 20250124

REACTIONS (4)
  - Vomiting [Recovered/Resolved]
  - Nausea [Recovered/Resolved]
  - Diarrhoea [Recovering/Resolving]
  - Faeces discoloured [Recovered/Resolved]

NARRATIVE: CASE EVENT DATE: 20250205
